FAERS Safety Report 15946850 (Version 1)
Quarter: 2019Q1

REPORT INFORMATION
  Report Type: Spontaneous
  Country: US (occurrence: US)
  Receive Date: 20190212
  Receipt Date: 20190212
  Transmission Date: 20190417
  Serious: No
  Sender: FDA-Public Use
  Company Number: US-PANACEA BIOTEC LTD-2019-US-000008

PATIENT

DRUGS (1)
  1. PRASUGREL. [Suspect]
     Active Substance: PRASUGREL
     Indication: PRODUCT USED FOR UNKNOWN INDICATION
     Route: 065
     Dates: start: 201811

REACTIONS (4)
  - Product quality issue [None]
  - Headache [Recovered/Resolved]
  - Contusion [None]
  - Swelling [None]

NARRATIVE: CASE EVENT DATE: 2018
